FAERS Safety Report 24464035 (Version 1)
Quarter: 2024Q4

REPORT INFORMATION
  Report Type: Report from Study
  Country: US (occurrence: US)
  Receive Date: 20241018
  Receipt Date: 20241018
  Transmission Date: 20250114
  Serious: No
  Sender: ROCHE
  Company Number: US-ROCHE-3491645

PATIENT
  Age: 71 Year
  Sex: Female
  Weight: 94.35 kg

DRUGS (6)
  1. XOLAIR [Suspect]
     Active Substance: OMALIZUMAB
     Indication: Idiopathic urticaria
     Dosage: 150 MG/ML
     Route: 065
  2. ALBUTEROL SULFATE [Concomitant]
     Active Substance: ALBUTEROL SULFATE
     Indication: Tachycardia
  3. TOPROL XL [Concomitant]
     Active Substance: METOPROLOL SUCCINATE
  4. EZETIMIBE [Concomitant]
     Active Substance: EZETIMIBE
  5. CELEBREX [Concomitant]
     Active Substance: CELECOXIB
  6. SINGULAIR [Concomitant]
     Active Substance: MONTELUKAST SODIUM

REACTIONS (2)
  - Off label use [Unknown]
  - No adverse event [Unknown]
